FAERS Safety Report 9753346 (Version 1)
Quarter: 2013Q4

REPORT INFORMATION
  Report Type: Spontaneous
  Country: US (occurrence: US)
  Receive Date: 20131213
  Receipt Date: 20131213
  Transmission Date: 20140711
  Serious: No
  Sender: FDA-Public Use
  Company Number: US-TEVA-405742USA

PATIENT
  Sex: Female
  Weight: 55.39 kg

DRUGS (6)
  1. PARAGARD 380A [Suspect]
     Indication: CONTRACEPTION
     Route: 015
     Dates: start: 201103
  2. ALLEGRA [Concomitant]
     Indication: HYPERSENSITIVITY
  3. METOPROLOL [Concomitant]
     Indication: TACHYCARDIA
  4. SINGULAIR [Concomitant]
     Indication: HYPERSENSITIVITY
  5. HYDROXYZINE [Concomitant]
     Indication: ANTIALLERGIC THERAPY
  6. MOMETASONE FUROATE [Concomitant]
     Indication: RASH
     Dosage: 0.1 PERCENT
     Route: 061

REACTIONS (3)
  - Dyspareunia [Not Recovered/Not Resolved]
  - Metrorrhagia [Recovered/Resolved]
  - Rash [Not Recovered/Not Resolved]
